FAERS Safety Report 4659674-2 (Version None)
Quarter: 2005Q2

REPORT INFORMATION
  Report Type: 
  Country: None (occurrence: None)
  Receive Date: 20050420
  Receipt Date: 20050216
  Transmission Date: 20051028
  Serious: No
  Sender: FDA-Public Use
  Company Number: PHEH2005US02165

PATIENT
  Sex: Male

DRUGS (3)
  1. ENABLEX [Suspect]
     Dosage: 7.5MG, ONCE/SINGLE
     Route: 048
  2. LESCOL [Concomitant]
  3. VYTORIN [Concomitant]

REACTIONS (1)
  - MUSCLE SPASMS [None]
